FAERS Safety Report 7894111-6 (Version None)
Quarter: 2011Q4

REPORT INFORMATION
  Report Type: 
  Country: None (occurrence: None)
  Receive Date: 20111104
  Receipt Date: 20111101
  Transmission Date: 20120403
  Serious: Yes (Hospitalization)
  Sender: FDA-Public Use
  Company Number: TR-ROXANE LABORATORIES, INC.-2011-RO-01571RO

PATIENT
  Age: 11 Year
  Sex: Female

DRUGS (2)
  1. VINCRISTINE [Suspect]
     Route: 042
  2. METHOTREXATE [Suspect]
     Indication: ACUTE LYMPHOCYTIC LEUKAEMIA
     Route: 037

REACTIONS (2)
  - NEUROTOXICITY [None]
  - FEBRILE NEUTROPENIA [None]
